FAERS Safety Report 6115778-9 (Version None)
Quarter: 2009Q1

REPORT INFORMATION
  Report Type: 
  Country: None (occurrence: None)
  Receive Date: 20090311
  Receipt Date: 20090302
  Transmission Date: 20090719
  Serious: No
  Sender: FDA-Public Use
  Company Number: 20096340

PATIENT
  Sex: Female

DRUGS (2)
  1. LIORESAL [Suspect]
     Indication: MUSCLE SPASTICITY
     Dosage: UNK MCG, DAILY; INTRATHECAL
     Route: 037
  2. EXCLUDE TREATMENT OF EVENT [Concomitant]

REACTIONS (3)
  - HAEMORRHAGE [None]
  - IMPAIRED HEALING [None]
  - INFECTION [None]
